FAERS Safety Report 12099058 (Version 3)
Quarter: 2016Q4

REPORT INFORMATION
  Report Type: Report from Study
  Country: IE (occurrence: IE)
  Receive Date: 20160222
  Receipt Date: 20161122
  Transmission Date: 20170206
  Serious: No
  Sender: FDA-Public Use
  Company Number: PHFR2016IE001654

PATIENT
  Age: 49 Year
  Sex: Female

DRUGS (4)
  1. SPATONE [Concomitant]
     Indication: BLOOD IRON DECREASED
     Dosage: 1 DF, QD
     Route: 048
  2. NAUDICELLE PLUS [Concomitant]
     Indication: HORMONE LEVEL ABNORMAL
     Dosage: 2 DF, TID
     Route: 048
  3. GILENYA [Suspect]
     Active Substance: FINGOLIMOD HYDROCHLORIDE
     Indication: MULTIPLE SCLEROSIS
     Dosage: 0.5 MG, UNK
     Route: 048
     Dates: start: 20140208
  4. CALCICHEW D3 FORTE [Concomitant]
     Active Substance: CALCIUM\CHOLECALCIFEROL
     Indication: OSTEOPOROSIS PROPHYLAXIS
     Dosage: 1 DF (500 MG + 400 U), BID
     Route: 048

REACTIONS (6)
  - Headache [Unknown]
  - Neutrophil count decreased [Recovering/Resolving]
  - Pain in extremity [Unknown]
  - Lymphocyte count decreased [Recovering/Resolving]
  - White blood cell count decreased [Recovering/Resolving]
  - Urinary tract infection [Not Recovered/Not Resolved]

NARRATIVE: CASE EVENT DATE: 20160201
